FAERS Safety Report 14141646 (Version 1)
Quarter: 2017Q4

REPORT INFORMATION
  Report Type: Spontaneous
  Country: US (occurrence: US)
  Receive Date: 20171030
  Receipt Date: 20171030
  Transmission Date: 20180321
  Serious: No
  Sender: FDA-Public Use
  Company Number: US-GLAXOSMITHKLINE-US2017164324

PATIENT
  Age: 68 Year
  Sex: Female

DRUGS (24)
  1. INCRUSE ELLIPTA [Suspect]
     Active Substance: UMECLIDINIUM BROMIDE
     Indication: CHRONIC OBSTRUCTIVE PULMONARY DISEASE
     Dosage: 1 PUFF(S), 1D
     Route: 055
  2. CEFTIN [Concomitant]
     Active Substance: CEFUROXIME AXETIL
  3. PATANOL EYE DROPS [Concomitant]
  4. PLAVIX [Concomitant]
     Active Substance: CLOPIDOGREL BISULFATE
  5. TRAMADOL. [Concomitant]
     Active Substance: TRAMADOL
  6. AMBIEN [Concomitant]
     Active Substance: ZOLPIDEM TARTRATE
  7. MUCINEX SR [Concomitant]
  8. VERAPAMIL [Concomitant]
     Active Substance: VERAPAMIL HYDROCHLORIDE
  9. FOLIC ACID. [Concomitant]
     Active Substance: FOLIC ACID
  10. IMBRUVICA [Concomitant]
     Active Substance: IBRUTINIB
  11. LEVOTHYROXIN [Concomitant]
     Active Substance: LEVOTHYROXINE
  12. ZYRTEC [Concomitant]
     Active Substance: CETIRIZINE HYDROCHLORIDE
  13. CHROMIUM PICOLINATE [Concomitant]
     Active Substance: CHROMIUM PICOLINATE
  14. BREO ELLIPTA [Suspect]
     Active Substance: FLUTICASONE FUROATE\VILANTEROL TRIFENATATE
     Indication: PRODUCT USED FOR UNKNOWN INDICATION
     Dosage: UNK
     Route: 055
     Dates: start: 2014
  15. BENTYL [Concomitant]
     Active Substance: DICYCLOMINE HYDROCHLORIDE
  16. TOPAMAX [Concomitant]
     Active Substance: TOPIRAMATE
  17. FIBROPLEX [Concomitant]
  18. VITAMIN B12 [Concomitant]
     Active Substance: CYANOCOBALAMIN
  19. CALCIUM WITH VITAMIN D [Concomitant]
     Active Substance: CALCIUM\VITAMIN D
  20. WELCHOL [Concomitant]
     Active Substance: COLESEVELAM HYDROCHLORIDE
  21. ACYCLOVIR. [Concomitant]
     Active Substance: ACYCLOVIR
  22. CYMBALTA [Concomitant]
     Active Substance: DULOXETINE HYDROCHLORIDE
  23. LORATADINE. [Concomitant]
     Active Substance: LORATADINE
  24. PREVACID [Concomitant]
     Active Substance: LANSOPRAZOLE

REACTIONS (2)
  - Bronchitis [Unknown]
  - Headache [Unknown]

NARRATIVE: CASE EVENT DATE: 2017
